FAERS Safety Report 6566006-1 (Version None)
Quarter: 2010Q1

REPORT INFORMATION
  Report Type: 
  Country: None (occurrence: None)
  Receive Date: 20100129
  Receipt Date: 20100129
  Transmission Date: 20100710
  Serious: No
  Sender: FDA-Public Use
  Company Number: None

PATIENT
  Age: 18 Year
  Sex: Male

DRUGS (4)
  1. AMOXICILLIN [Suspect]
     Indication: INFLUENZA
     Dates: start: 20100127, end: 20100128
  2. AMOXICILLIN [Suspect]
     Indication: NASOPHARYNGITIS
     Dates: start: 20100127, end: 20100128
  3. ZOLOFT [Concomitant]
  4. LAMICTAL [Concomitant]

REACTIONS (1)
  - FEELING ABNORMAL [None]
